APPROVED DRUG PRODUCT: DEXCHLORPHENIRAMINE MALEATE
Active Ingredient: DEXCHLORPHENIRAMINE MALEATE
Strength: 2MG
Dosage Form/Route: TABLET;ORAL
Application: A088682 | Product #001
Applicant: ANI PHARMACEUTICALS INC
Approved: Jan 17, 1986 | RLD: No | RS: No | Type: DISCN